FAERS Safety Report 7287597-1 (Version None)
Quarter: 2011Q1

REPORT INFORMATION
  Report Type: 
  Country: None (occurrence: None)
  Receive Date: 20110208
  Receipt Date: 20110208
  Transmission Date: 20110831
  Serious: Yes (Other)
  Sender: FDA-Public Use
  Company Number: None

PATIENT
  Sex: Female
  Weight: 89.8122 kg

DRUGS (2)
  1. EVAMIST [Suspect]
     Indication: HYSTERECTOMY
     Dosage: 3 SPRAYS DAILY TRANSDERMAL
     Route: 062
  2. EVAMIST [Suspect]
     Indication: HOT FLUSH
     Dosage: 3 SPRAYS DAILY TRANSDERMAL
     Route: 062

REACTIONS (5)
  - ACCIDENTAL EXPOSURE [None]
  - ALOPECIA [None]
  - VULVAL DISORDER [None]
  - PENIS DISORDER [None]
  - TOXICITY TO VARIOUS AGENTS [None]
